FAERS Safety Report 16217938 (Version 2)
Quarter: 2019Q3

REPORT INFORMATION
  Report Type: Spontaneous
  Country: FR (occurrence: FR)
  Receive Date: 20190419
  Receipt Date: 20190913
  Transmission Date: 20191004
  Serious: Yes (Other)
  Sender: FDA-Public Use
  Company Number: FR-ASTRAZENECA-2019SE58583

PATIENT
  Age: 493 Month
  Sex: Female
  Weight: 49 kg

DRUGS (7)
  1. FASENRA [Suspect]
     Active Substance: BENRALIZUMAB
     Indication: ASTHMA
     Route: 058
  2. SERETIDE [Concomitant]
     Active Substance: FLUTICASONE PROPIONATE\SALMETEROL XINAFOATE
     Indication: ASTHMA
     Dosage: 500/50 AT 2 INHALATIONS ON MORNING AND 2 INHALATIONS ON EVENING
  3. CORTANCYL [Suspect]
     Active Substance: PREDNISONE
     Indication: ASTHMA
     Dosage: PATIENT RECEIVED AGAIN ORAL CORTANCYL AT 60 MG
     Route: 048
     Dates: start: 201905
  4. SPIRIVA RESPIMAT [Concomitant]
     Active Substance: TIOTROPIUM BROMIDE
     Indication: ASTHMA
     Dosage: 2.5 AT 2 INHALATIONS ON MORNING
  5. CORTANCYL [Suspect]
     Active Substance: PREDNISONE
     Indication: ASTHMA
     Dosage: CORTICOSTEROID THERAPY DOSAGE INCREASE FROM 20 TO 60 MG/DAY
     Route: 048
     Dates: start: 20190303, end: 20190307
  6. FASENRA [Suspect]
     Active Substance: BENRALIZUMAB
     Indication: ASTHMA
     Route: 058
     Dates: start: 20190131
  7. CORTANCYL [Suspect]
     Active Substance: PREDNISONE
     Indication: ASTHMA
     Dosage: CORTICOSTEROID THERAPY DOSAGE WAS DECREASE BACK AT 20 MG/DAY
     Route: 048
     Dates: start: 201903

REACTIONS (3)
  - Diarrhoea [Recovered/Resolved]
  - Hyperhidrosis [Recovered/Resolved]
  - Asthma [Recovered/Resolved]

NARRATIVE: CASE EVENT DATE: 201903
